FAERS Safety Report 6710687-6 (Version None)
Quarter: 2010Q2

REPORT INFORMATION
  Report Type: 
  Country: None (occurrence: None)
  Receive Date: 20100504
  Receipt Date: 20100504
  Transmission Date: 20101027
  Serious: Yes (Other)
  Sender: FDA-Public Use
  Company Number: None

PATIENT
  Age: 67 Year
  Sex: Male
  Weight: 65.7716 kg

DRUGS (1)
  1. MUCUS RELIEF DM COUGH WALGREENS [Suspect]
     Dosage: 2 TABLETS
     Dates: start: 20100413, end: 20100413

REACTIONS (2)
  - HEART RATE ABNORMAL [None]
  - HEART RATE IRREGULAR [None]
